FAERS Safety Report 6307314-9 (Version None)
Quarter: 2009Q3

REPORT INFORMATION
  Report Type: 
  Country: None (occurrence: None)
  Receive Date: 20090813
  Receipt Date: 20070823
  Transmission Date: 20100115
  Serious: Yes (Other)
  Sender: FDA-Public Use
  Company Number: US-ASTRAZENECA-2006UW07980

PATIENT
  Age: 17936 Day
  Sex: Male
  Weight: 106.6 kg

DRUGS (27)
  1. SEROQUEL [Suspect]
     Indication: INSOMNIA
     Route: 048
     Dates: start: 20020101, end: 20060101
  2. SEROQUEL [Suspect]
     Indication: DEPRESSION
     Route: 048
     Dates: start: 20020101, end: 20060101
  3. SEROQUEL [Suspect]
     Dosage: 100MG-300MG DAILY
     Route: 048
     Dates: start: 20020925
  4. SEROQUEL [Suspect]
     Dosage: 100MG-300MG DAILY
     Route: 048
     Dates: start: 20020925
  5. ZOLOFT [Concomitant]
  6. WELLBUTRIN [Concomitant]
  7. ZOCOR [Concomitant]
  8. ELAVIL [Concomitant]
  9. VICODIN [Concomitant]
     Indication: MUSCULOSKELETAL PAIN
     Dosage: ONE TO TWO TABLETS AT NIGHT
  10. VICODIN [Concomitant]
     Indication: ARTHRALGIA
     Dosage: ONE TO TWO TABLETS AT NIGHT
  11. BYETTA [Concomitant]
     Indication: DIABETES MELLITUS
  12. PRILOSEC [Concomitant]
  13. ASPIRIN [Concomitant]
  14. ATENOLOL [Concomitant]
  15. LISINOPRIL [Concomitant]
     Route: 048
  16. NEURONTIN [Concomitant]
     Indication: NEUROPATHY PERIPHERAL
  17. CYCLOBENZAPRINE HCL [Concomitant]
  18. AMITRIPTYLINE HYDROCHLORIDE [Concomitant]
  19. BENZTROPINE MESYLATE [Concomitant]
  20. VIAGRA [Concomitant]
  21. LANTUS [Concomitant]
     Dosage: STRENGTH-100 UNIT/ML DOSE-10 UNITS-17 UNITS
  22. VOLTAREN [Concomitant]
     Route: 048
  23. NOVOLOG PEN [Concomitant]
  24. PERCOCET [Concomitant]
     Indication: PAIN
     Dosage: STRENGTH-5MG/325MG DOSE-ONE TO TWO TABLETS ONE TO FOUR TIMES A DAY AS NEEDED
     Route: 048
  25. PERCOCET [Concomitant]
     Indication: BACK PAIN
     Dosage: STRENGTH-5MG/325MG DOSE-ONE TO TWO TABLETS ONE TO FOUR TIMES A DAY AS NEEDED
     Route: 048
  26. LYRICA [Concomitant]
  27. FOLIC ACID [Concomitant]

REACTIONS (10)
  - BLOOD CHOLESTEROL INCREASED [None]
  - BLOOD GLUCOSE INCREASED [None]
  - DIABETES MELLITUS [None]
  - DIABETES MELLITUS INADEQUATE CONTROL [None]
  - DIABETIC NEUROPATHY [None]
  - NEUROPATHY PERIPHERAL [None]
  - OBESITY [None]
  - TYPE 2 DIABETES MELLITUS [None]
  - VISION BLURRED [None]
  - WEIGHT INCREASED [None]
